FAERS Safety Report 11649576 (Version 2)
Quarter: 2015Q4

REPORT INFORMATION
  Report Type: Spontaneous
  Country: US (occurrence: US)
  Receive Date: 20151021
  Receipt Date: 20151102
  Transmission Date: 20160304
  Serious: Yes (Hospitalization)
  Sender: FDA-Public Use
  Company Number: US-LPDUSPRD-20150811

PATIENT
  Age: 24 Year
  Sex: Male

DRUGS (17)
  1. ERTAPENEM [Concomitant]
     Active Substance: ERTAPENEM
     Dosage: DOSE NOT PROVIDED
     Route: 065
  2. ACICLOVIR [Concomitant]
     Active Substance: ACYCLOVIR
     Dosage: DOSE NOT PROVIDED
     Route: 065
  3. METHENAMINE [Concomitant]
     Active Substance: METHENAMINE
     Dosage: DOSE NOT PROVIDED
     Route: 065
  4. CLONIDINE. [Concomitant]
     Active Substance: CLONIDINE
     Dosage: DOSE NOT PROVIDED
     Route: 065
  5. DOXAZOSIN [Concomitant]
     Active Substance: DOXAZOSIN\DOXAZOSIN MESYLATE
     Dosage: DOSE NOT PROVIDED
     Route: 065
  6. GENTAMICIN. [Concomitant]
     Active Substance: GENTAMICIN
     Dosage: DOSE NOT PROVIDED
     Route: 065
  7. CEFTRIAXONE. [Concomitant]
     Active Substance: CEFTRIAXONE
     Dosage: DOSE NOT PROVIDED
     Route: 065
  8. FLUCONAZOLE. [Concomitant]
     Active Substance: FLUCONAZOLE
     Dosage: DOSE NOT PROVIDED
     Route: 065
  9. LUBIPROSTONE [Concomitant]
     Active Substance: LUBIPROSTONE
     Dosage: DOSE NOT PROVIDED
     Route: 065
  10. OMEPRAZOLE. [Concomitant]
     Active Substance: OMEPRAZOLE
     Dosage: DOSE NOT PROVIDED
     Route: 065
  11. VENLAFAXINE [Concomitant]
     Active Substance: VENLAFAXINE HYDROCHLORIDE
     Dosage: DOSE NOT PROVIDED
     Route: 065
  12. ENOXAPARIN [Concomitant]
     Active Substance: ENOXAPARIN
     Dosage: DOSE NOT PROVIDED
     Route: 065
  13. LEVETIRACETAM INJECTION (0517-3605-01) [Suspect]
     Active Substance: LEVETIRACETAM
     Dosage: LOADING 2000MG; TO 1000MG BID
     Route: 065
  14. VANCOMYCIN [Concomitant]
     Active Substance: VANCOMYCIN
     Dosage: DOSE NOT PROVIDED
     Route: 065
  15. METFORMIN [Concomitant]
     Active Substance: METFORMIN HYDROCHLORIDE
     Dosage: DOSE NOT PROVIDED
     Route: 065
  16. BACLOFEN. [Concomitant]
     Active Substance: BACLOFEN
     Dosage: DOSE NOT PROVIDED
     Route: 065
  17. DIAZEPAM. [Concomitant]
     Active Substance: DIAZEPAM
     Dosage: DOSE NOT PROVIDED
     Route: 065

REACTIONS (9)
  - Pseudomonas test positive [None]
  - Urine leukocyte esterase positive [None]
  - White blood cells urine positive [None]
  - Drug resistance [None]
  - Pyrexia [Recovered/Resolved]
  - Pancreatic pseudocyst [None]
  - Eosinophilia [Recovered/Resolved]
  - Thrombophlebitis superficial [None]
  - Bronchoalveolar lavage abnormal [None]
